FAERS Safety Report 11745217 (Version 1)
Quarter: 2015Q4

REPORT INFORMATION
  Report Type: Spontaneous
  Country: US (occurrence: US)
  Receive Date: 20151117
  Receipt Date: 20151117
  Transmission Date: 20160304
  Serious: No
  Sender: FDA-Public Use
  Company Number: US-009507513-1511USA008455

PATIENT
  Age: 59 Year
  Sex: Male

DRUGS (1)
  1. BELSOMRA [Suspect]
     Active Substance: SUVOREXANT
     Indication: INSOMNIA
     Dosage: ONE 20 MG TABLET DAILY
     Route: 048
     Dates: start: 20151110, end: 20151112

REACTIONS (1)
  - Terminal insomnia [Unknown]

NARRATIVE: CASE EVENT DATE: 20151111
